FAERS Safety Report 8956219 (Version 1)
Quarter: 2012Q4

REPORT INFORMATION
  Report Type: 
  Country: GB (occurrence: GB)
  Receive Date: 20121210
  Receipt Date: 20121210
  Transmission Date: 20130627
  Serious: Yes (Other)
  Sender: FDA-Public Use
  Company Number: PHHY2012GB112043

PATIENT
  Age: 61 Year
  Sex: Female

DRUGS (2)
  1. METHOTREXATE [Suspect]
     Dosage: 25 mg, QW
     Route: 048
  2. SIMPONI [Suspect]
     Dosage: 50 mg, UNK
     Route: 058

REACTIONS (3)
  - Skin lesion [Not Recovered/Not Resolved]
  - Pain [Not Recovered/Not Resolved]
  - Mouth ulceration [Not Recovered/Not Resolved]
